FAERS Safety Report 9294586 (Version 1)
Quarter: 2013Q2

REPORT INFORMATION
  Report Type: Spontaneous
  Country: US (occurrence: US)
  Receive Date: 20130517
  Receipt Date: 20130517
  Transmission Date: 20140414
  Serious: Yes (Other)
  Sender: FDA-Public Use
  Company Number: US-009507513-1305USA004540

PATIENT
  Sex: 0

DRUGS (3)
  1. VICTRELIS [Suspect]
     Indication: HEPATITIS C
     Dosage: UNK
     Route: 048
     Dates: start: 20130212
  2. PEG-INTRON [Suspect]
     Dosage: UNK
     Dates: start: 20130212
  3. REBETOL [Suspect]
     Dosage: UNK
     Route: 048
     Dates: start: 20130212

REACTIONS (3)
  - Pancytopenia [Unknown]
  - Rash [Unknown]
  - Anaemia [Unknown]
